FAERS Safety Report 6112639-6 (Version None)
Quarter: 2009Q1

REPORT INFORMATION
  Report Type: 
  Country: None (occurrence: None)
  Receive Date: 20090312
  Receipt Date: 20090303
  Transmission Date: 20090719
  Serious: Yes (Other)
  Sender: FDA-Public Use
  Company Number: US-BAYER-200838651NA

PATIENT
  Age: 53 Year
  Sex: Male
  Weight: 73 kg

DRUGS (11)
  1. NEXAVAR [Suspect]
     Indication: METASTATIC RENAL CELL CARCINOMA
     Dosage: TOTAL DAILY DOSE: 800 MG  UNIT DOSE: 200 MG
     Route: 048
     Dates: start: 20071210
  2. ASPIRIN [Concomitant]
  3. PLAVIX [Concomitant]
  4. METOPROLOL [Concomitant]
  5. LISINOPRIL [Concomitant]
  6. METFORMIN HCL [Concomitant]
  7. ZOCOR [Concomitant]
  8. DIOVAN [Concomitant]
  9. COMBIVENT [Concomitant]
  10. FISH OIL [Concomitant]
  11. ALEVE [Concomitant]

REACTIONS (10)
  - ACNE PUSTULAR [None]
  - DERMATITIS ACNEIFORM [None]
  - DIARRHOEA [None]
  - FATIGUE [None]
  - FURUNCLE [None]
  - PALMAR-PLANTAR ERYTHRODYSAESTHESIA SYNDROME [None]
  - RASH [None]
  - RASH MACULAR [None]
  - RASH PUSTULAR [None]
  - SUNBURN [None]
